FAERS Safety Report 9686995 (Version 2)
Quarter: 2013Q4

REPORT INFORMATION
  Report Type: Spontaneous
  Country: US (occurrence: US)
  Receive Date: 20131113
  Receipt Date: 20131118
  Transmission Date: 20140711
  Serious: Yes (Death)
  Sender: FDA-Public Use
  Company Number: US-B.I. PHARMACEUTICALS,INC./RIDGEFIELD-2013-BI-37192BP

PATIENT
  Sex: Male
  Weight: 81.64 kg

DRUGS (5)
  1. COMBIVENT [Suspect]
     Indication: CHRONIC OBSTRUCTIVE PULMONARY DISEASE
     Dosage: STRENGTH: 18 MCG / 103 MCG; 1 PUFF QID
     Route: 055
     Dates: start: 2010
  2. ATENOLOL [Concomitant]
     Indication: HYPERTENSION
     Dosage: 50 MG
  3. SPIRONOLACTONE [Concomitant]
     Indication: OEDEMA
     Dosage: 100 MG
  4. FUROSEMIDE [Concomitant]
     Indication: OEDEMA
     Dosage: 160 MG
  5. CHLORCON [Concomitant]
     Dosage: 10 MEQ

REACTIONS (1)
  - Hepatic cirrhosis [Fatal]
